FAERS Safety Report 24943679 (Version 2)
Quarter: 2025Q1

REPORT INFORMATION
  Report Type: Spontaneous
  Country: US (occurrence: US)
  Receive Date: 20250207
  Receipt Date: 20250326
  Transmission Date: 20250409
  Serious: Yes (Other)
  Sender: VISTAPHARM
  Company Number: US-VISTAPHARM-2025-US-006247

PATIENT
  Age: 23 Year
  Sex: Male
  Weight: 72.58 kg

DRUGS (4)
  1. OXYCODONE [Concomitant]
     Active Substance: OXYCODONE
  2. Orajel [Concomitant]
  3. SENSODYNE [Concomitant]
     Active Substance: POTASSIUM NITRATE\SODIUM FLUORIDE
  4. METHADONE HYDROCHLORIDE [Suspect]
     Active Substance: METHADONE HYDROCHLORIDE
     Indication: Drug abuse
     Route: 048
     Dates: start: 20170228, end: 20210709

REACTIONS (5)
  - Toothache [Recovered/Resolved]
  - Tooth injury [Recovered/Resolved]
  - Dental caries [Recovered/Resolved]
  - Tooth extraction [Unknown]
  - Tooth injury [Unknown]

NARRATIVE: CASE EVENT DATE: 20210201
